FAERS Safety Report 4408232-3 (Version None)
Quarter: 2004Q3

REPORT INFORMATION
  Report Type: 
  Country: None (occurrence: None)
  Receive Date: 20040726
  Receipt Date: 20040726
  Transmission Date: 20050211
  Serious: Yes (Life-Threatening, Hospitalization, Disabling)
  Sender: FDA-Public Use
  Company Number: None

PATIENT
  Age: 52 Year
  Sex: Female
  Weight: 83.9154 kg

DRUGS (2)
  1. NARDIL [Suspect]
     Indication: ANXIETY
     Dosage: 15 MG  2X/DAY ORAL
     Route: 048
     Dates: start: 19970827, end: 20040606
  2. NARDIL [Suspect]
     Indication: DEPRESSION
     Dosage: 15 MG  2X/DAY ORAL
     Route: 048
     Dates: start: 19970827, end: 20040606

REACTIONS (10)
  - ABASIA [None]
  - ANXIETY [None]
  - DYSGRAPHIA [None]
  - HAEMORRHAGIC STROKE [None]
  - HEADACHE [None]
  - INSOMNIA [None]
  - PAIN [None]
  - PAIN IN EXTREMITY [None]
  - PARALYSIS [None]
  - READING DISORDER [None]
